FAERS Safety Report 8941942 (Version 1)
Quarter: 2012Q4

REPORT INFORMATION
  Report Type: 
  Country: US (occurrence: US)
  Receive Date: 20121203
  Receipt Date: 20121203
  Transmission Date: 20130627
  Serious: Yes (Hospitalization, Congenital Anomaly, Other)
  Sender: FDA-Public Use
  Company Number: US-PFIZER INC-2012299035

PATIENT
  Sex: Female
  Weight: 2.67 kg

DRUGS (2)
  1. ZOLOFT [Suspect]
     Indication: DEPRESSION
     Dosage: 50 mg, half tablet daily for one week
     Route: 064
     Dates: start: 20060622
  2. ZOLOFT [Suspect]
     Dosage: 50 mg, 1x/day
     Route: 064
     Dates: start: 200606

REACTIONS (5)
  - Maternal exposure timing unspecified [Unknown]
  - Cleft lip [Unknown]
  - Patent ductus arteriosus [Unknown]
  - Ventricular septal defect [Unknown]
  - Atrial septal defect [Unknown]
